FAERS Safety Report 4873799-8 (Version None)
Quarter: 2006Q1

REPORT INFORMATION
  Report Type: 
  Country: None (occurrence: None)
  Receive Date: 20060104
  Receipt Date: 20051223
  Transmission Date: 20060701
  Serious: Yes (Hospitalization, Other)
  Sender: FDA-Public Use
  Company Number: 2005172929

PATIENT
  Sex: Male
  Weight: 72.5755 kg

DRUGS (6)
  1. LIPITOR [Suspect]
     Indication: BLOOD CHOLESTEROL INCREASED
     Dosage: 10 MG (10 MG, 1 IN 1 D)
  2. INDERIDE (HYDROCHLOROTHIAZIDE, PROPRANOLOL HYDROCHLORIDE) [Concomitant]
  3. TEMAZEPAM [Concomitant]
  4. IMDUR [Concomitant]
  5. QUININE SULFATE [Concomitant]
  6. NITROQUICK (GLYCERYL TRINITRATE) [Concomitant]

REACTIONS (3)
  - ABDOMINAL MASS [None]
  - COLON CANCER [None]
  - LYMPHOMA [None]
